FAERS Safety Report 7576021-7 (Version None)
Quarter: 2011Q2

REPORT INFORMATION
  Report Type: 
  Country: None (occurrence: None)
  Receive Date: 20110628
  Receipt Date: 20110120
  Transmission Date: 20111010
  Serious: Yes (Hospitalization, Other)
  Sender: FDA-Public Use
  Company Number: US-BAYER-201038797NA

PATIENT
  Age: 24 Year
  Sex: Female
  Weight: 99 kg

DRUGS (6)
  1. JORNLETTE [Concomitant]
     Dosage: UNK
     Dates: start: 20080101, end: 20090101
  2. TRI-SPRINTEC [Concomitant]
     Dosage: UNK
     Dates: start: 20100101
  3. YAZ [Suspect]
     Indication: CONTRACEPTION
     Dosage: UNK
     Dates: start: 20080101, end: 20080201
  4. PREVACID [Concomitant]
  5. MICRONOR [Concomitant]
     Dosage: UNK
     Dates: start: 20080101, end: 20090101
  6. YASMIN [Suspect]
     Indication: CONTRACEPTION
     Dosage: UNK
     Dates: start: 20021101, end: 20080201

REACTIONS (10)
  - INJURY [None]
  - SCAR [None]
  - ABDOMINAL PAIN UPPER [None]
  - GALLBLADDER INJURY [None]
  - CHOLECYSTITIS CHRONIC [None]
  - CHOLELITHIASIS [None]
  - EMOTIONAL DISTRESS [None]
  - CHOLESTEROSIS [None]
  - CHEST PAIN [None]
  - PAIN [None]
